FAERS Safety Report 7601515-5 (Version None)
Quarter: 2011Q3

REPORT INFORMATION
  Report Type: 
  Country: None (occurrence: None)
  Receive Date: 20110711
  Receipt Date: 20110519
  Transmission Date: 20111222
  Serious: Yes (Hospitalization)
  Sender: FDA-Public Use
  Company Number: PHHY2011JP40640

PATIENT
  Sex: Female

DRUGS (8)
  1. SORAFENIB TOSILATE [Concomitant]
     Indication: RENAL CELL CARCINOMA
     Dosage: 400 MG, UNK
     Route: 048
     Dates: start: 20091005, end: 20100715
  2. BASEN [Concomitant]
     Dosage: 0.6 MG, UNK
     Route: 048
  3. AFINITOR [Suspect]
     Indication: RENAL CELL CARCINOMA
     Dosage: 5 MG, DAILY
     Route: 048
     Dates: start: 20110316, end: 20110412
  4. SUNITINIB MALATE [Concomitant]
     Indication: RENAL CELL CARCINOMA
     Dosage: 25 MG, UNK
     Route: 048
     Dates: start: 20100727, end: 20110225
  5. NAPROXEN [Concomitant]
     Indication: RENAL CELL CARCINOMA
     Dosage: 400 MG, UNK
     Route: 048
  6. FAMOTIDINE [Concomitant]
     Indication: RENAL CELL CARCINOMA
     Dosage: 40 MG, UNK
     Route: 048
  7. MAGNESIUM OXIDE [Concomitant]
     Dosage: 0.25 MG, UNK
     Route: 048
  8. NITRAZEPAM [Concomitant]
     Dosage: 5 NG, UNK
     Route: 048

REACTIONS (1)
  - LEUKOENCEPHALOPATHY [None]
